FAERS Safety Report 16443597 (Version 2)
Quarter: 2024Q3

REPORT INFORMATION
  Report Type: Report from Study
  Country: US (occurrence: US)
  Receive Date: 20190618
  Receipt Date: 20240829
  Transmission Date: 20241017
  Serious: No
  Sender: TAKEDA
  Company Number: US-SHIRE-US201918603

PATIENT
  Sex: Female
  Weight: 61 kg

DRUGS (2)
  1. VELAGLUCERASE ALFA [Suspect]
     Active Substance: VELAGLUCERASE ALFA
     Indication: Product used for unknown indication
     Dosage: UNK
     Route: 058
  2. VELAGLUCERASE ALFA [Suspect]
     Active Substance: VELAGLUCERASE ALFA
     Dosage: UNK UNK, 2/MONTH
     Route: 042

REACTIONS (5)
  - Pain in extremity [Unknown]
  - Pregnancy [Unknown]
  - Product distribution issue [Unknown]
  - Product use issue [Unknown]
  - Product storage error [Unknown]
